FAERS Safety Report 4682928-0 (Version None)
Quarter: 2005Q2

REPORT INFORMATION
  Report Type: 
  Country: None (occurrence: None)
  Receive Date: 20050606
  Receipt Date: 20050426
  Transmission Date: 20051028
  Serious: Yes (Other)
  Sender: FDA-Public Use
  Company Number: PT-NOVOPROD-243989

PATIENT
  Age: 60 Year
  Sex: Male

DRUGS (1)
  1. INSULATARD NOVOLET [Suspect]
     Indication: DIABETES MELLITUS
     Route: 058

REACTIONS (5)
  - COLD SWEAT [None]
  - DIZZINESS [None]
  - FALL [None]
  - LOSS OF CONSCIOUSNESS [None]
  - MALAISE [None]
